FAERS Safety Report 15733718 (Version 1)
Quarter: 2018Q4

REPORT INFORMATION
  Report Type: Spontaneous
  Country: BE (occurrence: BE)
  Receive Date: 20181218
  Receipt Date: 20181218
  Transmission Date: 20190205
  Serious: Yes (Hospitalization, Other)
  Sender: FDA-Public Use
  Company Number: BE-ASTRAZENECA-2018SF61564

PATIENT
  Age: 42 Year
  Sex: Female
  Weight: 48.7 kg

DRUGS (16)
  1. HERCEPTIN [Suspect]
     Active Substance: TRASTUZUMAB
     Dosage: 8 MILLIGRAMS PER KILOGRAM
     Route: 042
     Dates: start: 20170518
  2. PANTOPRAZOLE [Concomitant]
     Active Substance: PANTOPRAZOLE
  3. FULVESTRANT. [Suspect]
     Active Substance: FULVESTRANT
     Indication: BREAST CANCER METASTATIC
     Dosage: 500.0MG UNKNOWN
     Route: 030
     Dates: start: 20161110
  4. HERCEPTIN [Suspect]
     Active Substance: TRASTUZUMAB
     Route: 042
     Dates: start: 2005, end: 20101207
  5. HERCEPTIN [Suspect]
     Active Substance: TRASTUZUMAB
     Dosage: 8 MILLIGRAMS PER KILOGRAM
     Route: 042
     Dates: start: 20110126, end: 20120313
  6. HERCEPTIN [Suspect]
     Active Substance: TRASTUZUMAB
     Dosage: 8 MILLIGRAMS PER KILOGRAM OR 6 MG/KG
     Route: 042
     Dates: start: 20161110
  7. TRASTUZUMAB. [Suspect]
     Active Substance: TRASTUZUMAB
     Indication: INVASIVE DUCTAL BREAST CARCINOMA
     Route: 042
     Dates: start: 20160303, end: 20160908
  8. PANCREATIN [Concomitant]
     Active Substance: PANCRELIPASE
  9. HERCEPTIN [Suspect]
     Active Substance: TRASTUZUMAB
     Dosage: 8 MILLIGRAMS PER KILOGRAM
     Route: 042
     Dates: start: 20170608
  10. PERJETA [Suspect]
     Active Substance: PERTUZUMAB
     Indication: INVASIVE DUCTAL BREAST CARCINOMA
     Route: 065
     Dates: start: 20110125, end: 20120221
  11. ABEMACICLIB [Suspect]
     Active Substance: ABEMACICLIB
     Indication: BREAST CANCER METASTATIC
     Route: 048
     Dates: start: 20161110, end: 201706
  12. HERCEPTIN [Suspect]
     Active Substance: TRASTUZUMAB
     Route: 042
     Dates: start: 20120403, end: 20160217
  13. XELODA [Suspect]
     Active Substance: CAPECITABINE
     Indication: INVASIVE DUCTAL BREAST CARCINOMA
     Dates: start: 20110125, end: 201203
  14. DENOSUMAB [Concomitant]
     Active Substance: DENOSUMAB
  15. OXYCODONE HYDROCHLORIDE. [Concomitant]
     Active Substance: OXYCODONE HYDROCHLORIDE
  16. ALIZAPRIDE [Concomitant]
     Active Substance: ALIZAPRIDE

REACTIONS (9)
  - Gastric disorder [Unknown]
  - Enterocolitis [Unknown]
  - Spinal cord infection [Unknown]
  - Disease recurrence [Unknown]
  - Neuropathy peripheral [Unknown]
  - Nausea [Unknown]
  - Oedema peripheral [Unknown]
  - Erythema multiforme [Unknown]
  - Subileus [Recovered/Resolved]

NARRATIVE: CASE EVENT DATE: 20151221
